FAERS Safety Report 5151872-7 (Version None)
Quarter: 2006Q4

REPORT INFORMATION
  Report Type: 
  Country: None (occurrence: None)
  Receive Date: 20061109
  Receipt Date: 20061030
  Transmission Date: 20070319
  Serious: Yes (Life-Threatening, Hospitalization, Other)
  Sender: FDA-Public Use
  Company Number: 2006135572

PATIENT
  Age: 31 Year
  Sex: Female
  Weight: 62 kg

DRUGS (7)
  1. PREDNISOLONE [Suspect]
     Indication: HEPATITIS
     Dosage: 40 MG (40 MG, 1 IN 1 D), ORAL
     Route: 048
     Dates: start: 20060612, end: 20060618
  2. IBUPROFEN [Suspect]
     Indication: ANALGESIC EFFECT
     Dosage: (3 IN 1 D), ORAL
     Route: 048
     Dates: start: 20060802, end: 20060814
  3. FOLIC ACID [Concomitant]
  4. LACTULOSE [Concomitant]
  5. SPIRONOLACTONE [Concomitant]
  6. THIAMINE         (THIAMINE) [Concomitant]
  7. BENZODIAZEPINE DERIVATIVES            (BENZODIAZEPINE DERIVATIVES) [Concomitant]

REACTIONS (4)
  - DUODENAL ULCER [None]
  - HAEMATEMESIS [None]
  - HEPATIC ENCEPHALOPATHY [None]
  - MELAENA [None]
